FAERS Safety Report 11597838 (Version 1)
Quarter: 2015Q4

REPORT INFORMATION
  Report Type: Report from Study
  Country: US (occurrence: US)
  Receive Date: 20151006
  Receipt Date: 20151006
  Transmission Date: 20160304
  Serious: No
  Sender: FDA-Public Use
  Company Number: US-AMGEN-USASL2015097682

PATIENT
  Sex: Female

DRUGS (1)
  1. ENBREL [Suspect]
     Active Substance: ETANERCEPT
     Indication: RHEUMATOID ARTHRITIS
     Dosage: UNK UNK, UNK
     Route: 065
     Dates: start: 20040801

REACTIONS (10)
  - Arthropathy [Unknown]
  - Osteoarthritis [Unknown]
  - Blood disorder [Unknown]
  - Contusion [Unknown]
  - Skin irritation [Unknown]
  - Laceration [Unknown]
  - Nasopharyngitis [Unknown]
  - Skin atrophy [Unknown]
  - Skin haemorrhage [Unknown]
  - Swelling [Unknown]

NARRATIVE: CASE EVENT DATE: 2015
